FAERS Safety Report 5269620-9 (Version None)
Quarter: 2007Q1

REPORT INFORMATION
  Report Type: 
  Country: None (occurrence: None)
  Receive Date: 20070320
  Receipt Date: 20070308
  Transmission Date: 20070707
  Serious: Yes (Other)
  Sender: FDA-Public Use
  Company Number: PHEH2004US03596

PATIENT
  Age: 47 Year
  Sex: Female
  Weight: 93.877 kg

DRUGS (30)
  1. FLUOROURACIL [Concomitant]
     Route: 048
  2. FLUOROURACIL [Concomitant]
     Dosage: 900MG Q3WKS X 4
     Dates: start: 19980101, end: 19980406
  3. KLONOPIN [Concomitant]
     Indication: DEPRESSION
  4. CHEMOTHERAPEUTICS,OTHER [Concomitant]
     Indication: BREAST CANCER
     Dates: start: 19970101
  5. STEROIDS NOS [Concomitant]
     Route: 042
     Dates: start: 19970101, end: 20020101
  6. ABRAXANE [Concomitant]
  7. CLARITIN [Concomitant]
  8. CIPRO [Concomitant]
  9. NEURONTIN [Concomitant]
  10. VIOXX [Concomitant]
  11. GEMZAR [Concomitant]
     Dosage: QWK X 3
     Route: 042
     Dates: start: 20030303, end: 20030804
  12. PROCRIT [Concomitant]
     Indication: ANAEMIA
     Dosage: 40,000 UNITS QWK AS NEEDED
     Dates: start: 20000101, end: 20060101
  13. KYTRIL [Concomitant]
  14. BENADRYL [Concomitant]
     Indication: PREMEDICATION
  15. SOLU-MEDROL [Concomitant]
     Indication: PREMEDICATION
  16. TAXOTERE [Concomitant]
     Dosage: 140MG Q3WKS X 4
     Route: 042
     Dates: start: 19980508, end: 19981026
  17. TAXOTERE [Concomitant]
     Dosage: 75MG Q3WKS X 4
     Route: 042
     Dates: start: 20010209, end: 20020204
  18. DECADRON #1 [Concomitant]
     Indication: PREMEDICATION
  19. CYTOXAN [Concomitant]
     Dosage: 900MG Q3WKS X4
     Route: 042
     Dates: start: 19980130, end: 19980406
  20. ADRIAMYCIN PFS [Concomitant]
     Dosage: 90MG Q3WK X4
     Route: 042
     Dates: start: 19980130, end: 19980406
  21. ARIMIDEX [Concomitant]
     Dosage: 1 MG, QD
     Dates: start: 19990528, end: 20000926
  22. AROMASIN [Concomitant]
     Dosage: 25 MG, QD
     Route: 048
     Dates: start: 20000924, end: 20010209
  23. AROMASIN [Concomitant]
     Dosage: 25 MG, QD
     Dates: start: 20011221, end: 20031204
  24. FEMARA [Concomitant]
     Dosage: 200 MG, QD
     Dates: start: 20020225, end: 20021020
  25. NAVELBINE [Concomitant]
     Dosage: 40MG QWK X 4
     Route: 042
     Dates: start: 20021218, end: 20030303
  26. ZOMETA [Suspect]
     Dosage: 4MG EVERY 3-4 WEEKS
     Route: 042
     Dates: start: 20020101, end: 20031201
  27. CELEXA [Concomitant]
     Indication: DEPRESSION
     Dates: start: 20040901
  28. PRILOSEC [Concomitant]
  29. XELODA [Concomitant]
     Indication: BREAST CANCER
     Dosage: UNK QD
  30. AREDIA [Suspect]
     Indication: BREAST CANCER METASTATIC
     Dosage: 90MG Q5WKS
     Route: 042
     Dates: start: 19980101, end: 20020805

REACTIONS (48)
  - APICECTOMY [None]
  - ASTHMA [None]
  - BLINDNESS TRANSIENT [None]
  - BONE DISORDER [None]
  - BONE GRAFT [None]
  - BONE PAIN [None]
  - BRONCHITIS [None]
  - CERVIX CARCINOMA [None]
  - DENTAL OPERATION [None]
  - DEPRESSION [None]
  - DYSPHONIA [None]
  - DYSPNOEA EXERTIONAL [None]
  - ENDODONTIC PROCEDURE [None]
  - ERYTHEMA [None]
  - EXCESSIVE GRANULATION TISSUE [None]
  - FISTULA [None]
  - GINGIVAL BLEEDING [None]
  - HYPOAESTHESIA ORAL [None]
  - IMPAIRED HEALING [None]
  - INCISIONAL DRAINAGE [None]
  - LIVER FUNCTION TEST ABNORMAL [None]
  - MASS [None]
  - METASTATIC NEOPLASM [None]
  - NERVE BLOCK [None]
  - NIGHT SWEATS [None]
  - OBSTRUCTIVE AIRWAYS DISORDER [None]
  - OSTEITIS [None]
  - OSTEOMYELITIS [None]
  - OSTEONECROSIS [None]
  - OSTEOSYNTHESIS [None]
  - PAIN IN JAW [None]
  - PERICARDIAL DISEASE [None]
  - PLEURAL EFFUSION [None]
  - PURULENT DISCHARGE [None]
  - RASH PRURITIC [None]
  - SENSORY LOSS [None]
  - SEQUESTRECTOMY [None]
  - SOFT TISSUE INFECTION [None]
  - STREPTOCOCCAL INFECTION [None]
  - SWELLING FACE [None]
  - TOOTH EXTRACTION [None]
  - TRACHEOSTOMY [None]
  - TRISMUS [None]
  - UPPER RESPIRATORY TRACT INFECTION [None]
  - URTICARIA [None]
  - WHITE BLOOD CELL COUNT DECREASED [None]
  - WOUND DEBRIDEMENT [None]
  - WOUND DRAINAGE [None]
